FAERS Safety Report 12875614 (Version 1)
Quarter: 2016Q4

REPORT INFORMATION
  Report Type: Report from Study
  Country: CA (occurrence: CA)
  Receive Date: 20161024
  Receipt Date: 20161024
  Transmission Date: 20170207
  Serious: Yes (Hospitalization, Other)
  Sender: FDA-Public Use
  Company Number: CA-AMGEN-CANSL2016144514

PATIENT
  Age: 69 Year
  Sex: Female

DRUGS (1)
  1. PROLIA [Suspect]
     Active Substance: DENOSUMAB
     Indication: PRODUCT USED FOR UNKNOWN INDICATION
     Dosage: UNK
     Route: 065
     Dates: start: 20130318

REACTIONS (5)
  - Parathyroid gland operation [Unknown]
  - Malaise [Not Recovered/Not Resolved]
  - Injection site pain [Unknown]
  - Hospitalisation [Unknown]
  - Gait disturbance [Unknown]

NARRATIVE: CASE EVENT DATE: 2013
